FAERS Safety Report 7471745-4 (Version None)
Quarter: 2011Q2

REPORT INFORMATION
  Report Type: 
  Country: None (occurrence: None)
  Receive Date: 20110511
  Receipt Date: 20100318
  Transmission Date: 20111010
  Serious: No
  Sender: FDA-Public Use
  Company Number: A0851661A

PATIENT
  Age: 54 Year
  Sex: Female

DRUGS (3)
  1. XELODA [Suspect]
     Dates: start: 20100317
  2. PAIN MEDICATION [Suspect]
     Indication: PAIN
     Route: 065
  3. TYKERB [Suspect]
     Dosage: 1250MG PER DAY
     Route: 065
     Dates: start: 20100317

REACTIONS (3)
  - NAUSEA [None]
  - CONSTIPATION [None]
  - DIARRHOEA [None]
